FAERS Safety Report 10865645 (Version 3)
Quarter: 2015Q2

REPORT INFORMATION
  Report Type: Spontaneous
  Country: US (occurrence: US)
  Receive Date: 20150224
  Receipt Date: 20150422
  Transmission Date: 20150821
  Serious: Yes (Death, Other)
  Sender: FDA-Public Use
  Company Number: US-GLAXOSMITHKLINE-US2015GSK010316

PATIENT
  Age: 68 Year
  Sex: Male
  Weight: 99.8 kg

DRUGS (4)
  1. LOSARTAN [Concomitant]
     Active Substance: LOSARTAN
  2. VOTRIENT [Suspect]
     Active Substance: PAZOPANIB HYDROCHLORIDE
     Indication: METASTASES TO GASTROINTESTINAL TRACT
  3. VOTRIENT [Suspect]
     Active Substance: PAZOPANIB HYDROCHLORIDE
     Indication: LUNG NEOPLASM MALIGNANT
  4. VOTRIENT [Suspect]
     Active Substance: PAZOPANIB HYDROCHLORIDE
     Indication: METASTASES TO LUNG
     Dosage: 800 MG, QD
     Route: 048
     Dates: start: 20141215

REACTIONS (11)
  - Arthralgia [Not Recovered/Not Resolved]
  - Cough [Unknown]
  - Death [Fatal]
  - Myalgia [Not Recovered/Not Resolved]
  - Nausea [Unknown]
  - Pyrexia [Not Recovered/Not Resolved]
  - Influenza [Unknown]
  - Asthenia [Unknown]
  - Chills [Not Recovered/Not Resolved]
  - Headache [Not Recovered/Not Resolved]
  - Decreased appetite [Unknown]

NARRATIVE: CASE EVENT DATE: 20150309
